FAERS Safety Report 6678254-0 (Version None)
Quarter: 2010Q2

REPORT INFORMATION
  Report Type: 
  Country: None (occurrence: None)
  Receive Date: 20100408
  Receipt Date: 20100408
  Transmission Date: 20101027
  Serious: Yes (Life-Threatening, Hospitalization, Other)
  Sender: FDA-Public Use
  Company Number: None

PATIENT
  Age: 66 Year
  Sex: Female
  Weight: 68.0396 kg

DRUGS (16)
  1. EFFIENT [Suspect]
     Indication: ANGIOPLASTY
     Dosage: 1 QD PO
     Route: 048
     Dates: start: 20100311, end: 20100407
  2. COUMADIN [Suspect]
     Indication: PULMONARY EMBOLISM
     Dosage: 1 QD PO
     Route: 048
     Dates: start: 20050601, end: 20100404
  3. ASPIRIN [Concomitant]
  4. VITAMIN D3 [Concomitant]
  5. PROVACHOL [Concomitant]
  6. NEXIUM [Concomitant]
  7. LOTREL [Concomitant]
  8. LASIX [Concomitant]
  9. GLUCOPHAGE [Concomitant]
  10. CELEXA [Concomitant]
  11. KLONOPIN [Concomitant]
  12. VERAMYST [Concomitant]
  13. CALTRATE [Concomitant]
  14. SLOW-K [Concomitant]
  15. AMBIEN [Concomitant]
  16. PROVENTIL [Concomitant]

REACTIONS (3)
  - CHEST PAIN [None]
  - GASTROINTESTINAL HAEMORRHAGE [None]
  - HAEMOGLOBIN DECREASED [None]
